FAERS Safety Report 9405316 (Version 2)
Quarter: 2013Q3

REPORT INFORMATION
  Report Type: Spontaneous
  Country: DE (occurrence: None)
  Receive Date: 20130703
  Receipt Date: 20130718
  Transmission Date: 20140515
  Serious: Yes (Hospitalization)
  Sender: FDA-Public Use
  Company Number: 2013036506

PATIENT
  Age: 26 Year
  Sex: Female

DRUGS (7)
  1. PRIVIGEN (IMMUNE GLOBULIN INTRAVENOUS (HUMAN) 10% LIQUID) [Suspect]
     Indication: MYASTHENIA GRAVIS
     Route: 042
     Dates: start: 20130528, end: 20130531
  2. PREDNISOLON /00016201/ [Concomitant]
  3. PYRIDOSTIGMINE (PYRIDOSTIGMINE) [Concomitant]
  4. VITAMIN D (ERGOCALCIFEROL) [Concomitant]
  5. KALLINOR-BRAUSETABLETTEN (KALINOR-BRAUSETABLETTEN) [Concomitant]
  6. CORTISON (CORTISONE ACETATE) [Concomitant]
  7. MESTINON (PYRIDOSTIGMINE BROMIDE) [Concomitant]

REACTIONS (9)
  - Haemolysis [None]
  - Headache [None]
  - Palpitations [None]
  - Nausea [None]
  - Dizziness [None]
  - Malaise [None]
  - Coombs direct test positive [None]
  - Blood bilirubin increased [None]
  - Haemoglobin decreased [None]
